FAERS Safety Report 11781494 (Version 4)
Quarter: 2018Q1

REPORT INFORMATION
  Report Type: Spontaneous
  Country: US (occurrence: US)
  Receive Date: 20151126
  Receipt Date: 20180313
  Transmission Date: 20180508
  Serious: Yes (Death, Other)
  Sender: FDA-Public Use
  Company Number: US-ELI_LILLY_AND_COMPANY-US201511006680

PATIENT
  Age: 56 Year
  Sex: Male
  Weight: 79.8 kg

DRUGS (14)
  1. ANDROGEL [Suspect]
     Active Substance: TESTOSTERONE
     Indication: BLOOD TESTOSTERONE DECREASED
     Dosage: UNK, UNKNOWN
     Route: 065
     Dates: start: 200609, end: 200805
  2. ANDROGEL [Suspect]
     Active Substance: TESTOSTERONE
     Dosage: UNK, QD
     Route: 065
     Dates: start: 201009, end: 201010
  3. GABAPENTIN. [Concomitant]
     Active Substance: GABAPENTIN
     Indication: SEIZURE
     Dosage: UNK
     Route: 065
     Dates: start: 200708
  4. ANDROGEL [Suspect]
     Active Substance: TESTOSTERONE
     Dosage: UNK, QD
     Route: 065
     Dates: start: 200901, end: 200902
  5. VIAGRA [Concomitant]
     Active Substance: SILDENAFIL CITRATE
     Indication: ERECTILE DYSFUNCTION
     Dosage: UNK
     Route: 065
     Dates: start: 201409
  6. AXIRON [Suspect]
     Active Substance: TESTOSTERONE
     Indication: BLOOD TESTOSTERONE DECREASED
     Dosage: UNK, UNKNOWN
     Route: 061
     Dates: start: 201303, end: 201311
  7. ANDROGEL [Suspect]
     Active Substance: TESTOSTERONE
     Dosage: UNK, QD
     Route: 065
     Dates: start: 201101, end: 201302
  8. AXIRON [Suspect]
     Active Substance: TESTOSTERONE
     Dosage: 60 MG, QD
     Route: 061
     Dates: start: 201504, end: 201602
  9. ANDRODERM [Suspect]
     Active Substance: TESTOSTERONE
     Indication: BLOOD TESTOSTERONE DECREASED
     Dosage: UNK, UNKNOWN
     Route: 065
     Dates: start: 200509, end: 200512
  10. VITAMIN D2 [Concomitant]
     Active Substance: ERGOCALCIFEROL
     Indication: VITAMIN D DEFICIENCY
     Dosage: UNK
     Route: 065
     Dates: start: 201412, end: 201508
  11. AXIRON [Suspect]
     Active Substance: TESTOSTERONE
     Dosage: 60 MG, QD
     Route: 061
     Dates: start: 201406, end: 201410
  12. ERGOCALCIFEROL. [Concomitant]
     Active Substance: ERGOCALCIFEROL
     Indication: VITAMIN D DECREASED
     Dosage: UNK
     Route: 065
     Dates: start: 200903
  13. AXIRON [Suspect]
     Active Substance: TESTOSTERONE
     Dosage: UNK, UNKNOWN
     Route: 065
     Dates: start: 201402, end: 201403
  14. ENALAPRIL MALEATE. [Concomitant]
     Active Substance: ENALAPRIL MALEATE
     Indication: HYPERTENSION
     Dosage: UNK
     Route: 065
     Dates: start: 200611

REACTIONS (2)
  - Death [Fatal]
  - Deep vein thrombosis [Not Recovered/Not Resolved]

NARRATIVE: CASE EVENT DATE: 201402
